FAERS Safety Report 4614379-9 (Version None)
Quarter: 2005Q2

REPORT INFORMATION
  Report Type: 
  Country: None (occurrence: None)
  Receive Date: 20050307
  Receipt Date: 20050125
  Transmission Date: 20051028
  Serious: No
  Sender: FDA-Public Use
  Company Number: USA050189169

PATIENT
  Sex: Male

DRUGS (1)
  1. ALIMITA (PEMETREXED) [Suspect]
     Dosage: 1000 MG

REACTIONS (1)
  - INJECTION SITE REACTION [None]
